FAERS Safety Report 4420290-9 (Version None)
Quarter: 2004Q2

REPORT INFORMATION
  Report Type: 
  Country: None (occurrence: None)
  Receive Date: 20040622
  Receipt Date: 20040212
  Transmission Date: 20050107
  Serious: Yes (Hospitalization)
  Sender: FDA-Public Use
  Company Number: US-JNJFOC-20040106022

PATIENT
  Age: 79 Year
  Sex: Female
  Weight: 68.0396 kg

DRUGS (1)
  1. HALDOL [Suspect]
     Indication: DRUG USE FOR UNKNOWN INDICATION
     Dosage: 55 MG TOTAL ADMINISTERED ON 21 AND 22-JAN-04
     Dates: start: 20040121, end: 20040122

REACTIONS (1)
  - SOMNOLENCE [None]
